FAERS Safety Report 8192278-6 (Version None)
Quarter: 2012Q1

REPORT INFORMATION
  Report Type: 
  Country: None (occurrence: None)
  Receive Date: 20120307
  Receipt Date: 20111013
  Transmission Date: 20120608
  Serious: Yes (Other)
  Sender: FDA-Public Use
  Company Number: US-ROCHE-GNE322387

PATIENT
  Sex: Female

DRUGS (27)
  1. OMALIZUMAB [Suspect]
     Route: 058
     Dates: start: 20110524
  2. VITAMIN B-12 [Concomitant]
     Route: 048
     Dates: start: 20110923
  3. NYSTATIN [Concomitant]
     Route: 061
     Dates: start: 20110923
  4. PROBIOTIC (UNK INGREDIENTS) [Concomitant]
     Indication: ASTHMA
  5. OMALIZUMAB [Suspect]
     Route: 058
     Dates: start: 20110421
  6. PULMICORT [Concomitant]
     Indication: ASTHMA
     Dosage: UNK
  7. ALBUTEROL [Concomitant]
     Indication: ASTHMA
     Dosage: UNK
  8. VITAMIN D [Concomitant]
     Indication: ASTHMA
  9. ZYRTEC [Concomitant]
     Indication: HYPERSENSITIVITY
     Route: 048
     Dates: start: 20090101
  10. PHENERGAN [Concomitant]
     Indication: NAUSEA
     Dosage: UNK
  11. XOPENEX [Concomitant]
     Indication: ASTHMA
     Dosage: UNK
     Dates: start: 20090101
  12. ZOFRAN [Concomitant]
     Indication: NAUSEA
     Dosage: UNK
  13. OMALIZUMAB [Suspect]
     Indication: ASTHMA
     Dosage: 375 MG, Q2W, LAST DOSE PRIOR TO SAE 5 MAY 2011
     Route: 058
     Dates: start: 20110408
  14. SINGULAIR [Concomitant]
     Indication: ASTHMA
     Dosage: UNK
     Route: 048
     Dates: start: 20090101
  15. ALVESCO [Concomitant]
     Indication: ASTHMA
  16. OMALIZUMAB [Suspect]
     Route: 058
     Dates: start: 20110622
  17. DOCUSATE SODIUM/SENNOSIDES [Concomitant]
     Indication: CONSTIPATION
     Route: 048
     Dates: start: 20100101
  18. SYMBICORT [Concomitant]
     Indication: ASTHMA
  19. FISH OIL [Concomitant]
     Indication: ASTHMA
  20. METHYLDOPA [Concomitant]
     Indication: HYPERTENSION
     Dosage: O
     Route: 048
     Dates: start: 20110601
  21. HYDROCHLOROTHIAZIDE [Concomitant]
     Indication: HYPERTENSION
  22. CELEXA [Concomitant]
     Indication: DEPRESSION
  23. VITAMIN AND MINERAL PRENATAL SUPPLEMENT W/ FOLIC ACID CAP [Concomitant]
     Indication: PREGNANCY
     Dosage: UNK
  24. TYLENOL-500 [Concomitant]
     Indication: HEADACHE
     Route: 048
     Dates: start: 20110901
  25. OMALIZUMAB [Suspect]
     Dates: start: 20110505
  26. OMALIZUMAB [Suspect]
     Route: 058
     Dates: start: 20110607
  27. PULMICORT NEBULIZER [Concomitant]
     Indication: ASTHMA
     Dosage: UNK

REACTIONS (3)
  - MATERNAL EXPOSURE DURING PREGNANCY [None]
  - VENTRICULAR EXTRASYSTOLES [None]
  - ABORTION SPONTANEOUS [None]
